FAERS Safety Report 6589388-3 (Version None)
Quarter: 2010Q1

REPORT INFORMATION
  Report Type: 
  Country: None (occurrence: None)
  Receive Date: 20100212
  Receipt Date: 20100127
  Transmission Date: 20100710
  Serious: Yes (Hospitalization)
  Sender: FDA-Public Use
  Company Number: VISP-UK-1001S-0038

PATIENT
  Age: 62 Year
  Sex: Male

DRUGS (3)
  1. VISIPAQUE [Suspect]
     Indication: ACUTE CORONARY SYNDROME
     Dosage: SINGLE DOSE, I.A.
     Route: 014
     Dates: start: 20091214, end: 20091214
  2. VISIPAQUE [Suspect]
  3. VISIPAQUE [Suspect]

REACTIONS (3)
  - DIPLOPIA [None]
  - EMBOLISM [None]
  - POST PROCEDURAL COMPLICATION [None]
